FAERS Safety Report 25081035 (Version 2)
Quarter: 2025Q2

REPORT INFORMATION
  Report Type: Spontaneous
  Country: US (occurrence: US)
  Receive Date: 20250315
  Receipt Date: 20250603
  Transmission Date: 20250717
  Serious: No
  Sender: SANOFI AVENTIS
  Company Number: US-SA-2025SA073970

PATIENT
  Age: 72 Year
  Sex: Male

DRUGS (1)
  1. DUPIXENT [Suspect]
     Active Substance: DUPILUMAB
     Indication: Nasal polyps
     Dosage: 300 MG, QOW
     Route: 058

REACTIONS (7)
  - Secretion discharge [Unknown]
  - Productive cough [Unknown]
  - Anosmia [Unknown]
  - Ageusia [Unknown]
  - Nasal congestion [Unknown]
  - Heart rate increased [Unknown]
  - Therapeutic response decreased [Unknown]
